FAERS Safety Report 4417100-2 (Version None)
Quarter: 2004Q2

REPORT INFORMATION
  Report Type: 
  Country: None (occurrence: None)
  Receive Date: 20040628
  Receipt Date: 20040303
  Transmission Date: 20050107
  Serious: No
  Sender: FDA-Public Use
  Company Number: USA-2004-0013567

PATIENT
  Age: 27 Year
  Sex: Female

DRUGS (2)
  1. SPECTRACEF [Suspect]
     Indication: INFECTION
     Dosage: 200 MG, BID
  2. DECONGESTANTS AND ANTIALLERGICS [Concomitant]

REACTIONS (1)
  - VISION BLURRED [None]
